FAERS Safety Report 22529041 (Version 2)
Quarter: 2023Q2

REPORT INFORMATION
  Report Type: Report from Study
  Country: US (occurrence: US)
  Receive Date: 20230607
  Receipt Date: 20230608
  Transmission Date: 20230721
  Serious: No
  Sender: FDA-Public Use
  Company Number: US-002147023-NVSC2023US128101

PATIENT
  Sex: Male

DRUGS (24)
  1. COSENTYX [Suspect]
     Active Substance: SECUKINUMAB
     Indication: Nail psoriasis
     Dosage: 300 MG
     Route: 058
  2. COSENTYX [Suspect]
     Active Substance: SECUKINUMAB
     Indication: Psoriasis
  3. ATORVASTATIN [Suspect]
     Active Substance: ATORVASTATIN
     Indication: Psoriasis
     Dosage: UNK
     Route: 065
  4. ATORVASTATIN [Suspect]
     Active Substance: ATORVASTATIN
     Indication: Nail psoriasis
  5. AMLODIPINE [Suspect]
     Active Substance: AMLODIPINE BESYLATE
     Indication: Psoriasis
     Dosage: UNK
     Route: 065
  6. AMLODIPINE [Suspect]
     Active Substance: AMLODIPINE BESYLATE
     Indication: Nail psoriasis
  7. CARVEDILOL [Suspect]
     Active Substance: CARVEDILOL
     Indication: Psoriasis
     Dosage: UNK
     Route: 065
  8. CARVEDILOL [Suspect]
     Active Substance: CARVEDILOL
     Indication: Nail psoriasis
  9. EZETIMIBE [Suspect]
     Active Substance: EZETIMIBE
     Indication: Psoriasis
     Dosage: UNK
     Route: 065
  10. EZETIMIBE [Suspect]
     Active Substance: EZETIMIBE
     Indication: Nail psoriasis
  11. GABAPENTIN [Suspect]
     Active Substance: GABAPENTIN
     Indication: Psoriasis
     Dosage: UNK
     Route: 065
  12. GABAPENTIN [Suspect]
     Active Substance: GABAPENTIN
     Indication: Nail psoriasis
  13. TAMSULOSIN [Suspect]
     Active Substance: TAMSULOSIN
     Indication: Psoriasis
     Dosage: UNK
     Route: 065
  14. TAMSULOSIN [Suspect]
     Active Substance: TAMSULOSIN
     Indication: Nail psoriasis
  15. HALOBETASOL PROPIONATE [Suspect]
     Active Substance: HALOBETASOL PROPIONATE
     Indication: Psoriasis
     Dosage: UNK
     Route: 061
  16. HALOBETASOL PROPIONATE [Suspect]
     Active Substance: HALOBETASOL PROPIONATE
     Indication: Nail psoriasis
  17. AZELASTINE [Suspect]
     Active Substance: AZELASTINE
     Indication: Psoriasis
     Dosage: UNK
     Route: 065
  18. AZELASTINE [Suspect]
     Active Substance: AZELASTINE
     Indication: Nail psoriasis
  19. MELATONIN [Suspect]
     Active Substance: MELATONIN
     Indication: Psoriasis
     Dosage: UNK
     Route: 065
  20. MELATONIN [Suspect]
     Active Substance: MELATONIN
     Indication: Nail psoriasis
  21. RANOLAZINE [Suspect]
     Active Substance: RANOLAZINE
     Indication: Psoriasis
     Dosage: UNK, (EXTEND RELEASE GRANULES PACKET)
     Route: 065
  22. RANOLAZINE [Suspect]
     Active Substance: RANOLAZINE
     Indication: Nail psoriasis
  23. VITAMIN B12 [Suspect]
     Active Substance: CYANOCOBALAMIN
     Indication: Psoriasis
     Dosage: UNK, (VITAMIN B12-FOLIC ACID)
     Route: 065
  24. VITAMIN B12 [Suspect]
     Active Substance: CYANOCOBALAMIN
     Indication: Nail psoriasis

REACTIONS (6)
  - Psoriasis [Unknown]
  - Guttate psoriasis [Unknown]
  - Pruritus [Unknown]
  - Skin hyperpigmentation [Unknown]
  - Treatment failure [Unknown]
  - Product use in unapproved indication [Unknown]
